FAERS Safety Report 9052281 (Version 1)
Quarter: 2013Q1

REPORT INFORMATION
  Report Type: Spontaneous
  Country: US (occurrence: US)
  Receive Date: 20130206
  Receipt Date: 20130206
  Transmission Date: 20140127
  Serious: No
  Sender: FDA-Public Use
  Company Number: US-009507513-1302USA000705

PATIENT
  Sex: Female

DRUGS (4)
  1. AZASITE [Suspect]
     Indication: CONJUNCTIVITIS BACTERIAL
     Dosage: 1 %, UNK ONE DROP IN EACH EYE TWICE A DAY FOR THE FIRST TWO DAYS FOLLOWED BY ONE DROP IN EACH EYE
     Route: 047
     Dates: start: 20130130
  2. PRILOSEC [Concomitant]
  3. AMBIEN [Concomitant]
  4. PROZAC [Concomitant]
     Dosage: UNK

REACTIONS (2)
  - Drug dose omission [Unknown]
  - Product quality issue [Unknown]
